FAERS Safety Report 5689120-1 (Version None)
Quarter: 2008Q1

REPORT INFORMATION
  Report Type: 
  Country: None (occurrence: None)
  Receive Date: 20080331
  Receipt Date: 19860620
  Transmission Date: 20080703
  Serious: Yes (Death, Other)
  Sender: FDA-Public Use
  Company Number: SE-ROCHE-860102172001

PATIENT
  Age: 20 Year
  Sex: Male

DRUGS (2)
  1. ISOTRETINOIN [Suspect]
     Route: 048
     Dates: start: 19860115, end: 19860504
  2. ETHANOL [Concomitant]
     Route: 065

REACTIONS (5)
  - ALCOHOL INTOLERANCE [None]
  - CEREBRAL HAEMORRHAGE [None]
  - DEATH [None]
  - SKULL FRACTURE [None]
  - SPINAL DISORDER [None]
